FAERS Safety Report 5736502-5 (Version None)
Quarter: 2008Q2

REPORT INFORMATION
  Report Type: 
  Country: None (occurrence: None)
  Receive Date: 20080508
  Receipt Date: 20080429
  Transmission Date: 20081010
  Serious: Yes (Hospitalization)
  Sender: FDA-Public Use
  Company Number: DSA_31792_2008

PATIENT
  Sex: Male

DRUGS (4)
  1. ATIVAN [Suspect]
     Indication: DRUG USE FOR UNKNOWN INDICATION
     Dosage: (DF)
  2. REVLIMID (10 MG, 25 MG) (NOT SPECIFIED) [Suspect]
     Indication: MULTIPLE MYELOMA
     Dosage: (10 MG EVERY OTHER DAY ORAL), (25 MG EVERY OTHER DAY ORAL)
     Route: 048
     Dates: start: 20080214, end: 20080312
  3. REVLIMID (10 MG, 25 MG) (NOT SPECIFIED) [Suspect]
     Indication: MULTIPLE MYELOMA
     Dosage: (10 MG EVERY OTHER DAY ORAL), (25 MG EVERY OTHER DAY ORAL)
     Route: 048
     Dates: start: 20080318
  4. ASPIRIN [Concomitant]

REACTIONS (7)
  - BLOOD CREATININE INCREASED [None]
  - BLOOD UREA INCREASED [None]
  - HAEMOGLOBIN DECREASED [None]
  - PLATELET COUNT DECREASED [None]
  - PULMONARY EMBOLISM [None]
  - RASH [None]
  - SOMNOLENCE [None]
